FAERS Safety Report 6075195-7 (Version None)
Quarter: 2009Q1

REPORT INFORMATION
  Report Type: 
  Country: None (occurrence: None)
  Receive Date: 20090210
  Receipt Date: 20090128
  Transmission Date: 20090719
  Serious: Yes (Hospitalization)
  Sender: FDA-Public Use
  Company Number: 2009PL000037

PATIENT
  Sex: Female

DRUGS (3)
  1. LABETALOL HYDROCHLORIDE [Suspect]
     Indication: HYPERTENSION
  2. REBIF [Suspect]
     Indication: MULTIPLE SCLEROSIS
     Dosage: 8.8 MCG; TID; SC
     Route: 058
     Dates: start: 20060426, end: 20060901
  3. UNSPECIFIED SLEEP MEDICATION (ALL OTHER THERAPEUTIC PRODUCTS) [Suspect]
     Indication: SLEEP DISORDER

REACTIONS (7)
  - DEATH NEONATAL [None]
  - DRUG EXPOSURE DURING PREGNANCY [None]
  - FOETAL HYPOKINESIA [None]
  - MATERNAL DRUGS AFFECTING FOETUS [None]
  - PRE-ECLAMPSIA [None]
  - PREGNANCY [None]
  - PREMATURE BABY [None]
